FAERS Safety Report 16636522 (Version 2)
Quarter: 2020Q3

REPORT INFORMATION
  Report Type: Report from Study
  Country: US (occurrence: US)
  Receive Date: 20190726
  Receipt Date: 20190801
  Transmission Date: 20201105
  Serious: Yes (Death)
  Sender: FDA-Public Use
  Company Number: US-ROCHE-2363575

PATIENT
  Age: 70 Year
  Sex: Female
  Weight: 59 kg

DRUGS (26)
  1. LEVOTHYROXINE SODIUM. [Concomitant]
     Active Substance: LEVOTHYROXINE SODIUM
     Indication: HYPOTHYROIDISM
     Route: 048
  2. CODEINE SULFATE. [Concomitant]
     Active Substance: CODEINE SULFATE
     Route: 048
     Dates: start: 20190422
  3. SIMETHICONE (DIMETHICONE) [Concomitant]
     Active Substance: DIMETHICONE
     Indication: GASTROOESOPHAGEAL REFLUX DISEASE
     Route: 048
  4. DULOXETINE DR [Concomitant]
     Active Substance: DULOXETINE
     Indication: NEUROPATHY PERIPHERAL
  5. CODEINE SULFATE. [Concomitant]
     Active Substance: CODEINE SULFATE
     Indication: PAIN
     Route: 048
     Dates: start: 20190509
  6. ZOLPIDEM TARTRATE. [Concomitant]
     Active Substance: ZOLPIDEM TARTRATE
     Indication: INSOMNIA
     Route: 048
     Dates: start: 20190326
  7. ONDANSETRON [Concomitant]
     Active Substance: ONDANSETRON
     Indication: NAUSEA
     Route: 048
     Dates: start: 20190513
  8. DULOXETINE DR [Concomitant]
     Active Substance: DULOXETINE
     Indication: PAIN
     Route: 048
     Dates: start: 20190520
  9. DULOXETINE DR [Concomitant]
     Active Substance: DULOXETINE
     Indication: PAIN
     Route: 048
     Dates: start: 20171114
  10. GABAPENTIN. [Concomitant]
     Active Substance: GABAPENTIN
     Indication: NEUROPATHY PERIPHERAL
     Route: 048
     Dates: start: 20190117
  11. VALACYCLOVIR [Concomitant]
     Active Substance: VALACYCLOVIR HYDROCHLORIDE
     Indication: ANTIVIRAL PROPHYLAXIS
     Route: 048
     Dates: start: 20190221
  12. DIPHENHYDRAMINE. [Concomitant]
     Active Substance: DIPHENHYDRAMINE
     Route: 048
     Dates: start: 20190325
  13. GABAPENTIN. [Concomitant]
     Active Substance: GABAPENTIN
     Indication: NEUROPATHY PERIPHERAL
     Route: 048
     Dates: start: 20190325
  14. LORATADINE. [Concomitant]
     Active Substance: LORATADINE
     Indication: CHRONIC SINUSITIS
     Route: 048
     Dates: start: 20190501
  15. LEVOFLOXACIN. [Concomitant]
     Active Substance: LEVOFLOXACIN
     Indication: ANTIBIOTIC PROPHYLAXIS
     Route: 048
     Dates: start: 20190509
  16. VENETOCLAX. [Suspect]
     Active Substance: VENETOCLAX
     Indication: ACUTE MYELOID LEUKAEMIA REFRACTORY
     Dosage: ON 16/JUN/2019, SHE RECEIVED THE MOST RECENT DOSE (300 MG) OF VENETOCLAX PRIOR TO AE (ADVERSE EVENT)
     Route: 048
     Dates: start: 20190325
  17. ASPERCREME WITH LIDOCAINE [Concomitant]
     Active Substance: LIDOCAINE
     Indication: PAIN
     Dosage: 1 OTHER
     Route: 062
     Dates: start: 20190509
  18. PROCHLORPERAZINE. [Concomitant]
     Active Substance: PROCHLORPERAZINE
     Indication: NAUSEA
     Route: 048
     Dates: start: 20190530
  19. ACETAMINOPHEN. [Concomitant]
     Active Substance: ACETAMINOPHEN
     Route: 048
     Dates: start: 20190324
  20. TRAMADOL HCL [Concomitant]
     Active Substance: TRAMADOL HYDROCHLORIDE
     Indication: PAIN
     Route: 048
     Dates: start: 20190422
  21. POLYETHYLENE GLYCOL 3350. [Concomitant]
     Active Substance: POLYETHYLENE GLYCOL 3350
     Indication: CONSTIPATION
     Dosage: 1 OTHER
     Route: 048
     Dates: start: 20190521
  22. DOCUSATE SODIUM. [Concomitant]
     Active Substance: DOCUSATE SODIUM
     Indication: CONSTIPATION
     Route: 048
     Dates: start: 20190603
  23. IDASANUTLIN. [Suspect]
     Active Substance: IDASANUTLIN
     Indication: ACUTE MYELOID LEUKAEMIA REFRACTORY
     Dosage: ON 24/MAY/2019, SHE RECEIVED THE MOST RECENT DOSE (100 MG) OF IDASANUTLIN PRIOR TO AE (ADVERSE EVENT
     Route: 048
     Dates: start: 20190325
  24. DULOXETINE DR [Concomitant]
     Active Substance: DULOXETINE
     Indication: NEUROPATHY PERIPHERAL
  25. OXYCODONE HYDROCHLORIDE. [Concomitant]
     Active Substance: OXYCODONE HYDROCHLORIDE
     Indication: PAIN
     Route: 048
     Dates: start: 2018
  26. CHLORHEXIDINE [Concomitant]
     Active Substance: CHLORHEXIDINE
     Indication: STOMATITIS
     Route: 048
     Dates: start: 20190513

REACTIONS (1)
  - Cardio-respiratory arrest [Fatal]

NARRATIVE: CASE EVENT DATE: 20190719
